FAERS Safety Report 15260004 (Version 1)
Quarter: 2018Q3

REPORT INFORMATION
  Report Type: Spontaneous
  Country: US (occurrence: US)
  Receive Date: 20180809
  Receipt Date: 20180809
  Transmission Date: 20181010
  Serious: No
  Sender: FDA-Public Use
  Company Number: US-PFIZER INC-2018317250

PATIENT
  Sex: Female

DRUGS (1)
  1. LYRICA [Suspect]
     Active Substance: PREGABALIN
     Indication: DIABETIC NEUROPATHY
     Dosage: 50 MG, 2X/DAY(50 MG CAPSULE BY MOUTH TWICE A DAY)
     Route: 048

REACTIONS (5)
  - Mouth swelling [Unknown]
  - Blood cholesterol increased [Unknown]
  - Incontinence [Unknown]
  - Swollen tongue [Unknown]
  - Dyspnoea [Unknown]
